FAERS Safety Report 6256252-9 (Version None)
Quarter: 2009Q3

REPORT INFORMATION
  Report Type: 
  Country: None (occurrence: None)
  Receive Date: 20090706
  Receipt Date: 20090512
  Transmission Date: 20100115
  Serious: No
  Sender: FDA-Public Use
  Company Number: A0784923A

PATIENT
  Sex: Female

DRUGS (2)
  1. ADVAIR HFA [Suspect]
     Indication: DRUG USE FOR UNKNOWN INDICATION
  2. SALBUTAMOL SULPHATE [Suspect]
     Indication: DRUG USE FOR UNKNOWN INDICATION

REACTIONS (6)
  - APHONIA [None]
  - DYSPHONIA [None]
  - LUNG DISORDER [None]
  - NAUSEA [None]
  - OROPHARYNGEAL DISCOMFORT [None]
  - PHARYNGEAL DISORDER [None]
